FAERS Safety Report 16314612 (Version 1)
Quarter: 2019Q2

REPORT INFORMATION
  Report Type: Spontaneous
  Country: CN (occurrence: CN)
  Receive Date: 20190515
  Receipt Date: 20190515
  Transmission Date: 20190711
  Serious: Yes (Other)
  Sender: FDA-Public Use
  Company Number: CN-PFIZER INC-2019200687

PATIENT
  Age: 58 Year
  Sex: Male
  Weight: 62 kg

DRUGS (2)
  1. LIPITOR [Suspect]
     Active Substance: ATORVASTATIN CALCIUM
     Indication: PANCREATITIS ACUTE
     Dosage: 1 DF, 1X/DAY
     Route: 048
     Dates: start: 20190505, end: 20190507
  2. WEI HENG [Suspect]
     Active Substance: CLEBOPRIDE MALATE
     Indication: PANCREATITIS ACUTE
     Dosage: 1 DF, 3X/DAY
     Route: 048
     Dates: start: 20190505, end: 20190507

REACTIONS (6)
  - Rash [Recovering/Resolving]
  - Off label use [Unknown]
  - Product use in unapproved indication [Unknown]
  - Pruritus [Recovering/Resolving]
  - Peripheral swelling [Recovering/Resolving]
  - Erythema [Recovering/Resolving]

NARRATIVE: CASE EVENT DATE: 20190505
